FAERS Safety Report 10170099 (Version 1)
Quarter: 2014Q2

REPORT INFORMATION
  Report Type: Spontaneous
  Country: US (occurrence: US)
  Receive Date: 20140513
  Receipt Date: 20140513
  Transmission Date: 20141212
  Serious: Yes (Hospitalization)
  Sender: FDA-Public Use
  Company Number: US-GLAXOSMITHKLINE-A1072296A

PATIENT
  Sex: Female

DRUGS (17)
  1. ADVAIR HFA [Suspect]
     Indication: CHRONIC OBSTRUCTIVE PULMONARY DISEASE
     Dosage: 1PUFF TWICE PER DAY
     Route: 055
     Dates: start: 2000
  2. ADVAIR HFA [Suspect]
     Indication: ASTHMA
     Route: 055
     Dates: start: 201310
  3. FLOVENT [Suspect]
     Indication: ASTHMA
     Dosage: 1PUFF TWICE PER DAY
     Route: 055
  4. TOPROL [Concomitant]
  5. ECOTRIN [Concomitant]
  6. FOLIC ACID [Concomitant]
  7. MAXZIDE [Concomitant]
  8. CO ENZYME Q10 [Concomitant]
  9. KRILL OIL [Concomitant]
  10. VITAMIN C [Concomitant]
  11. VITAMIN E [Concomitant]
  12. OMEPRAZOLE [Concomitant]
  13. VITAMIN D [Concomitant]
  14. CENTRUM SILVER [Concomitant]
  15. RED YEAST RICE [Concomitant]
  16. TYLENOL [Concomitant]
  17. ALBUTEROL [Concomitant]

REACTIONS (7)
  - Oesophageal candidiasis [Unknown]
  - Palpitations [Unknown]
  - Bronchitis [Unknown]
  - Cardiac disorder [Unknown]
  - Dyspnoea [Unknown]
  - Oral candidiasis [Unknown]
  - Drug effect decreased [Unknown]
